FAERS Safety Report 5635703-4 (Version None)
Quarter: 2008Q1

REPORT INFORMATION
  Report Type: 
  Country: None (occurrence: None)
  Receive Date: 20080220
  Receipt Date: 20080207
  Transmission Date: 20080703
  Serious: Yes (Hospitalization)
  Sender: FDA-Public Use
  Company Number: GRP08000017

PATIENT
  Sex: Male

DRUGS (1)
  1. DANTROLENE SODIUM [Suspect]
     Dosage: ORAL
     Route: 048

REACTIONS (2)
  - FIBROSIS [None]
  - MYELODYSPLASTIC SYNDROME [None]
